FAERS Safety Report 15298746 (Version 2)
Quarter: 2018Q4

REPORT INFORMATION
  Report Type: Report from Study
  Country: None (occurrence: CA)
  Receive Date: 20180820
  Receipt Date: 20181206
  Transmission Date: 20190204
  Serious: Yes (Hospitalization, Other)
  Sender: FDA-Public Use
  Company Number: CA-ABBVIE-18S-028-2456174-00

PATIENT
  Age: 83 Year
  Sex: Male

DRUGS (1)
  1. DUODOPA [Suspect]
     Active Substance: CARBIDOPA\LEVODOPA
     Indication: PARKINSON^S DISEASE
     Route: 050
     Dates: start: 20170321

REACTIONS (2)
  - Fall [Recovering/Resolving]
  - Cervical vertebral fracture [Recovered/Resolved]

NARRATIVE: CASE EVENT DATE: 20180728
